FAERS Safety Report 5655615-X (Version None)
Quarter: 2008Q1

REPORT INFORMATION
  Report Type: 
  Country: None (occurrence: None)
  Receive Date: 20080307
  Receipt Date: 20080303
  Transmission Date: 20080703
  Serious: Yes (Other)
  Sender: FDA-Public Use
  Company Number: DE-JNJFOC-20080204577

PATIENT
  Sex: Male
  Weight: 85 kg

DRUGS (8)
  1. INVEGA [Suspect]
     Indication: SCHIZOPHRENIA
     Route: 048
  2. ARIPRIPRAZOL [Concomitant]
     Indication: SCHIZOPHRENIA
     Route: 048
  3. PIPAMPERON [Concomitant]
     Indication: SCHIZOPHRENIA
     Route: 048
  4. DIGITOXIN INJ [Concomitant]
     Indication: TACHYARRHYTHMIA
     Route: 048
  5. ASPIRIN [Concomitant]
     Indication: TACHYARRHYTHMIA
     Route: 048
  6. VERAPAMIL [Concomitant]
     Indication: TACHYARRHYTHMIA
     Route: 048
  7. METFORMIN HCL [Concomitant]
     Indication: DIABETES MELLITUS
     Route: 048
  8. GLYBURIDE [Concomitant]
     Indication: DIABETES MELLITUS
     Route: 048

REACTIONS (1)
  - CEREBROVASCULAR ACCIDENT [None]
